FAERS Safety Report 26117773 (Version 1)
Quarter: 2025Q4

REPORT INFORMATION
  Report Type: Report from Study
  Country: US (occurrence: US)
  Receive Date: 20251203
  Receipt Date: 20251203
  Transmission Date: 20260117
  Serious: Yes (Other)
  Sender: MYLAN
  Company Number: US-MYLANLABS-2025M1102069

PATIENT
  Age: 4 Year
  Sex: Male

DRUGS (28)
  1. DEXAMETHASONE SODIUM PHOSPHATE [Suspect]
     Active Substance: DEXAMETHASONE SODIUM PHOSPHATE
     Indication: B-cell type acute leukaemia
     Dosage: 10 MILLIGRAM/SQ. METER, BID,ON DAYS 1-4 AND 11-14; CYCLICAL; PART OF MINI-HCVD REGIMEN
  2. DEXAMETHASONE SODIUM PHOSPHATE [Suspect]
     Active Substance: DEXAMETHASONE SODIUM PHOSPHATE
     Dosage: 10 MILLIGRAM/SQ. METER, BID,ON DAYS 1-4 AND 11-14; CYCLICAL; PART OF MINI-HCVD REGIMEN
     Route: 042
  3. DEXAMETHASONE SODIUM PHOSPHATE [Suspect]
     Active Substance: DEXAMETHASONE SODIUM PHOSPHATE
     Dosage: 10 MILLIGRAM/SQ. METER, BID,ON DAYS 1-4 AND 11-14; CYCLICAL; PART OF MINI-HCVD REGIMEN
     Route: 042
  4. DEXAMETHASONE SODIUM PHOSPHATE [Suspect]
     Active Substance: DEXAMETHASONE SODIUM PHOSPHATE
     Dosage: 10 MILLIGRAM/SQ. METER, BID,ON DAYS 1-4 AND 11-14; CYCLICAL; PART OF MINI-HCVD REGIMEN
  5. METHOTREXATE [Suspect]
     Active Substance: METHOTREXATE
     Indication: B-cell type acute leukaemia
     Dosage: 250 MILLIGRAM/SQ. METER, QD, ON DAY 1 ;CYCLICAL; PART OF MINI-HCVD REGIMEN
  6. METHOTREXATE [Suspect]
     Active Substance: METHOTREXATE
     Dosage: 250 MILLIGRAM/SQ. METER, QD, ON DAY 1 ;CYCLICAL; PART OF MINI-HCVD REGIMEN
     Route: 042
  7. METHOTREXATE [Suspect]
     Active Substance: METHOTREXATE
     Dosage: 250 MILLIGRAM/SQ. METER, QD, ON DAY 1 ;CYCLICAL; PART OF MINI-HCVD REGIMEN
     Route: 042
  8. METHOTREXATE [Suspect]
     Active Substance: METHOTREXATE
     Dosage: 250 MILLIGRAM/SQ. METER, QD, ON DAY 1 ;CYCLICAL; PART OF MINI-HCVD REGIMEN
  9. CYCLOPHOSPHAMIDE [Suspect]
     Active Substance: CYCLOPHOSPHAMIDE
     Indication: B-cell type acute leukaemia
     Dosage: 150 MILLIGRAM/SQ. METER, BID,ON DAYS 1-3; CYCLICAL; PART OF MINI-HCVD REGIMEN
  10. CYCLOPHOSPHAMIDE [Suspect]
     Active Substance: CYCLOPHOSPHAMIDE
     Dosage: 150 MILLIGRAM/SQ. METER, BID,ON DAYS 1-3; CYCLICAL; PART OF MINI-HCVD REGIMEN
     Route: 042
  11. CYCLOPHOSPHAMIDE [Suspect]
     Active Substance: CYCLOPHOSPHAMIDE
     Dosage: 150 MILLIGRAM/SQ. METER, BID,ON DAYS 1-3; CYCLICAL; PART OF MINI-HCVD REGIMEN
     Route: 042
  12. CYCLOPHOSPHAMIDE [Suspect]
     Active Substance: CYCLOPHOSPHAMIDE
     Dosage: 150 MILLIGRAM/SQ. METER, BID,ON DAYS 1-3; CYCLICAL; PART OF MINI-HCVD REGIMEN
  13. VINCRISTINE [Suspect]
     Active Substance: VINCRISTINE
     Indication: B-cell type acute leukaemia
     Dosage: 1.5 MILLIGRAM/SQ. METER, ON DAYS 1 AND 8; PART OF MINI-HCVD REGIMEN
  14. VINCRISTINE [Suspect]
     Active Substance: VINCRISTINE
     Dosage: 1.5 MILLIGRAM/SQ. METER, ON DAYS 1 AND 8; PART OF MINI-HCVD REGIMEN
     Route: 042
  15. VINCRISTINE [Suspect]
     Active Substance: VINCRISTINE
     Dosage: 1.5 MILLIGRAM/SQ. METER, ON DAYS 1 AND 8; PART OF MINI-HCVD REGIMEN
     Route: 042
  16. VINCRISTINE [Suspect]
     Active Substance: VINCRISTINE
     Dosage: 1.5 MILLIGRAM/SQ. METER, ON DAYS 1 AND 8; PART OF MINI-HCVD REGIMEN
  17. CYTARABINE [Suspect]
     Active Substance: CYTARABINE
     Indication: B-cell type acute leukaemia
     Dosage: 0.5 GRAMS/M2 ON DAYS 2 AND 3; CYCLICAL; PART OF MINI-HCVD REGIMEN, BID
  18. CYTARABINE [Suspect]
     Active Substance: CYTARABINE
     Dosage: 0.5 GRAMS/M2 ON DAYS 2 AND 3; CYCLICAL; PART OF MINI-HCVD REGIMEN, BID
     Route: 042
  19. CYTARABINE [Suspect]
     Active Substance: CYTARABINE
     Dosage: 0.5 GRAMS/M2 ON DAYS 2 AND 3; CYCLICAL; PART OF MINI-HCVD REGIMEN, BID
     Route: 042
  20. CYTARABINE [Suspect]
     Active Substance: CYTARABINE
     Dosage: 0.5 GRAMS/M2 ON DAYS 2 AND 3; CYCLICAL; PART OF MINI-HCVD REGIMEN, BID
  21. INOTUZUMAB OZOGAMICIN [Suspect]
     Active Substance: INOTUZUMAB OZOGAMICIN
     Indication: B-cell type acute leukaemia
     Dosage: UNK
  22. INOTUZUMAB OZOGAMICIN [Suspect]
     Active Substance: INOTUZUMAB OZOGAMICIN
     Dosage: UNK
     Route: 042
  23. INOTUZUMAB OZOGAMICIN [Suspect]
     Active Substance: INOTUZUMAB OZOGAMICIN
     Dosage: UNK
     Route: 042
  24. INOTUZUMAB OZOGAMICIN [Suspect]
     Active Substance: INOTUZUMAB OZOGAMICIN
     Dosage: UNK
  25. PEGFILGRASTIM [Concomitant]
     Active Substance: PEGFILGRASTIM
     Indication: Prophylaxis
     Dosage: 0.1 MILLIGRAM/KILOGRAM
  26. PEGFILGRASTIM [Concomitant]
     Active Substance: PEGFILGRASTIM
     Dosage: 0.1 MILLIGRAM/KILOGRAM
     Route: 058
  27. PEGFILGRASTIM [Concomitant]
     Active Substance: PEGFILGRASTIM
     Dosage: 0.1 MILLIGRAM/KILOGRAM
     Route: 058
  28. PEGFILGRASTIM [Concomitant]
     Active Substance: PEGFILGRASTIM
     Dosage: 0.1 MILLIGRAM/KILOGRAM

REACTIONS (1)
  - Venoocclusive liver disease [Recovered/Resolved]
